FAERS Safety Report 18727419 (Version 2)
Quarter: 2021Q1

REPORT INFORMATION
  Report Type: Spontaneous
  Country: US (occurrence: US)
  Receive Date: 20210112
  Receipt Date: 20210113
  Transmission Date: 20210419
  Serious: No
  Sender: FDA-Public Use
  Company Number: US-BIOGEN-2020BI00874416

PATIENT
  Sex: Female

DRUGS (5)
  1. TECFIDERA [Suspect]
     Active Substance: DIMETHYL FUMARATE
     Route: 065
  2. TECFIDERA [Suspect]
     Active Substance: DIMETHYL FUMARATE
     Indication: MULTIPLE SCLEROSIS
     Route: 048
  3. LOVASTATIN. [Concomitant]
     Active Substance: LOVASTATIN
     Route: 065
  4. TECFIDERA [Suspect]
     Active Substance: DIMETHYL FUMARATE
     Route: 065
     Dates: start: 20160906
  5. BACLOFEN. [Concomitant]
     Active Substance: BACLOFEN
     Route: 065

REACTIONS (4)
  - Gastric disorder [Not Recovered/Not Resolved]
  - Product dose omission issue [Unknown]
  - Visual acuity reduced [Unknown]
  - Flushing [Not Recovered/Not Resolved]
